FAERS Safety Report 21388033 (Version 2)
Quarter: 2022Q4

REPORT INFORMATION
  Report Type: Report from Study
  Country: DE (occurrence: DE)
  Receive Date: 20220928
  Receipt Date: 20221004
  Transmission Date: 20230112
  Serious: Yes (Hospitalization)
  Sender: FDA-Public Use
  Company Number: DE-ROCHE-3165889

PATIENT
  Age: 61 Year
  Sex: Male

DRUGS (4)
  1. RITUXIMAB [Suspect]
     Active Substance: RITUXIMAB
     Indication: Diffuse large B-cell lymphoma
     Dosage: 713 MG, 1X/DAY
     Route: 042
     Dates: start: 20220809, end: 20220809
  2. IFOSFAMIDE [Suspect]
     Active Substance: IFOSFAMIDE
     Indication: Diffuse large B-cell lymphoma
     Dosage: 9500 MG
     Route: 042
     Dates: start: 20220810, end: 20220811
  3. CARBOPLATIN [Suspect]
     Active Substance: CARBOPLATIN
     Indication: Diffuse large B-cell lymphoma
     Dosage: 797 MG
     Route: 042
     Dates: start: 20220810, end: 20220810
  4. ETOPOSIDE [Suspect]
     Active Substance: ETOPOSIDE
     Indication: Diffuse large B-cell lymphoma
     Dosage: 190 MG, 1X/DAY
     Route: 042
     Dates: start: 20220809, end: 20220811

REACTIONS (2)
  - Febrile neutropenia [Recovered/Resolved]
  - Acute abdomen [Recovered/Resolved]

NARRATIVE: CASE EVENT DATE: 20220816
